FAERS Safety Report 16984944 (Version 1)
Quarter: 2019Q4

REPORT INFORMATION
  Report Type: Spontaneous
  Country: US (occurrence: US)
  Receive Date: 20191031
  Receipt Date: 20191031
  Transmission Date: 20200122
  Serious: Yes (Disabling, Other)
  Sender: FDA-Public Use
  Company Number: None

PATIENT
  Age: 17 Year
  Sex: Female
  Weight: 51.75 kg

DRUGS (2)
  1. DEPO-PROVERA [Suspect]
     Active Substance: MEDROXYPROGESTERONE ACETATE
     Indication: DYSMENORRHOEA
     Dosage: ?          OTHER FREQUENCY:EVERY 90 DAYS;?
     Route: 058
     Dates: start: 20190211, end: 20190429
  2. IRON SUPPLEMENT 100MG [Concomitant]

REACTIONS (4)
  - Depression [None]
  - Flat affect [None]
  - Loss of personal independence in daily activities [None]
  - Affective disorder [None]

NARRATIVE: CASE EVENT DATE: 20190211
